FAERS Safety Report 6065759-9 (Version None)
Quarter: 2009Q1

REPORT INFORMATION
  Report Type: 
  Country: None (occurrence: None)
  Receive Date: 20090202
  Receipt Date: 20090123
  Transmission Date: 20090719
  Serious: Yes (Hospitalization)
  Sender: FDA-Public Use
  Company Number: KV200900123

PATIENT
  Age: 55 Year
  Sex: Female
  Weight: 106.6 kg

DRUGS (1)
  1. DEXTROAMPHETAMINE SULFATE [Suspect]
     Indication: ASTHENIA
     Dosage: 10 MG, 2 TABS QAM, 1 TAB EVERY AFTERNOON, ORAL
     Route: 048
     Dates: start: 20060101, end: 20081101

REACTIONS (1)
  - MYOCARDIAL INFARCTION [None]
